FAERS Safety Report 6676874-0 (Version None)
Quarter: 2010Q2

REPORT INFORMATION
  Report Type: 
  Country: None (occurrence: None)
  Receive Date: 20100412
  Receipt Date: 20100401
  Transmission Date: 20101027
  Serious: Yes (Other)
  Sender: FDA-Public Use
  Company Number: DE-ROCHE-696136

PATIENT
  Sex: Male
  Weight: 70 kg

DRUGS (1)
  1. TOCILIZUMAB [Suspect]
     Indication: RHEUMATOID ARTHRITIS
     Dosage: 10-FEB-2010: LAST APPLICATION PRIOR TO THE EVENT
     Route: 042
     Dates: start: 20090608, end: 20100210

REACTIONS (1)
  - BURSITIS [None]
